FAERS Safety Report 9330642 (Version 1)
Quarter: 2013Q2

REPORT INFORMATION
  Report Type: Spontaneous
  Country: US (occurrence: None)
  Receive Date: 20130604
  Receipt Date: 20130604
  Transmission Date: 20140414
  Serious: Yes (Hospitalization)
  Sender: FDA-Public Use
  Company Number: None

PATIENT
  Age: 20 Year
  Sex: Male

DRUGS (1)
  1. SERTRALINE [Suspect]
     Route: 048
     Dates: start: 20130528, end: 20130530

REACTIONS (6)
  - Serotonin syndrome [None]
  - Tremor [None]
  - Tremor [None]
  - Hallucination, visual [None]
  - Coordination abnormal [None]
  - Body temperature increased [None]
